FAERS Safety Report 7902217-8 (Version None)
Quarter: 2011Q4

REPORT INFORMATION
  Report Type: 
  Country: None (occurrence: None)
  Receive Date: 20111108
  Receipt Date: 20111027
  Transmission Date: 20120403
  Serious: Yes (Hospitalization)
  Sender: FDA-Public Use
  Company Number: DE-B.I. PHARMACEUTICALS,INC./RIDGEFIELD-2011-EU-00139BY

PATIENT
  Sex: Male
  Weight: 84 kg

DRUGS (4)
  1. TELMISARTAN [Suspect]
     Route: 065
     Dates: start: 20110726, end: 20110811
  2. TORSEMIDE [Concomitant]
     Dates: start: 20110817
  3. MARCUMAR [Concomitant]
  4. TELMISARTAN [Suspect]
     Dosage: 20 MG
     Route: 065
     Dates: start: 20110617, end: 20110726

REACTIONS (11)
  - OEDEMA [None]
  - UPPER RESPIRATORY TRACT INFECTION [None]
  - ASTHENIA [None]
  - DYSPNOEA [None]
  - FLATULENCE [None]
  - CARDIAC FAILURE ACUTE [None]
  - SUFFOCATION FEELING [None]
  - OEDEMA PERIPHERAL [None]
  - PRURITUS [None]
  - DIZZINESS [None]
  - INCREASED BRONCHIAL SECRETION [None]
